FAERS Safety Report 8608102-0 (Version None)
Quarter: 2012Q3

REPORT INFORMATION
  Report Type: 
  Country: None (occurrence: None)
  Receive Date: 20120821
  Receipt Date: 20120815
  Transmission Date: 20120928
  Serious: Yes (Other)
  Sender: FDA-Public Use
  Company Number: PHEH2012US016073

PATIENT
  Sex: Male

DRUGS (2)
  1. NORVASC [Concomitant]
  2. DIOVAN [Suspect]
     Indication: BLOOD PRESSURE
     Dosage: 160 MG, QD
     Route: 048

REACTIONS (3)
  - CEREBROVASCULAR ACCIDENT [None]
  - VASCULAR STENOSIS [None]
  - ARTERIAL INJURY [None]
